FAERS Safety Report 14541744 (Version 1)
Quarter: 2018Q1

REPORT INFORMATION
  Report Type: Report from Study
  Country: BE (occurrence: BE)
  Receive Date: 20180216
  Receipt Date: 20180216
  Transmission Date: 20180509
  Serious: Yes (Hospitalization, Other)
  Sender: FDA-Public Use
  Company Number: BE-TEVA-2018-BE-858464

PATIENT
  Age: 51 Year
  Sex: Female
  Weight: 54 kg

DRUGS (2)
  1. SUMATRIPTAN. [Suspect]
     Active Substance: SUMATRIPTAN
     Indication: HEADACHE
     Dosage: 100 MILLIGRAM DAILY;
     Route: 065
     Dates: start: 2017
  2. LEMTRADA [Suspect]
     Active Substance: ALEMTUZUMAB
     Indication: MULTIPLE SCLEROSIS
     Route: 041
     Dates: end: 20160509

REACTIONS (12)
  - Headache [Recovering/Resolving]
  - Multiple sclerosis relapse [Unknown]
  - Tremor [Unknown]
  - Fatigue [Not Recovered/Not Resolved]
  - Oral mucosal blistering [Unknown]
  - Pain in extremity [Unknown]
  - Somnolence [Unknown]
  - Back pain [Unknown]
  - Paraesthesia [Unknown]
  - Herpes ophthalmic [Recovering/Resolving]
  - Diplopia [Recovered/Resolved]
  - Limb discomfort [Unknown]

NARRATIVE: CASE EVENT DATE: 20161111
